FAERS Safety Report 10174999 (Version 2)
Quarter: 2014Q2

REPORT INFORMATION
  Report Type: Spontaneous
  Country: US (occurrence: US)
  Receive Date: 20140515
  Receipt Date: 20140522
  Transmission Date: 20141212
  Serious: Yes (Hospitalization, Other)
  Sender: FDA-Public Use
  Company Number: US-PURDUE-USA-2014-0113947

PATIENT
  Age: 32 Year
  Sex: Female

DRUGS (5)
  1. OXYCODONE HYDROCHLORIDE (SIMILAR TO NDA 22-272) [Suspect]
     Indication: DRUG ABUSE
     Dosage: UNKNOWN
     Route: 065
  2. OXYCODONE HYDROCHLORIDE (SIMILAR TO NDA 22-272) [Suspect]
     Indication: BACK INJURY
  3. AMPHETAMINE [Suspect]
     Indication: DRUG ABUSE
     Dosage: UNKNOWN
     Route: 065
  4. BARBITURATES [Suspect]
     Indication: DRUG ABUSE
     Dosage: UNKNOWN
     Route: 065
  5. BENZODIAZEPINE DERIVATIVES [Suspect]
     Indication: DRUG ABUSE
     Dosage: UNKNOWN
     Route: 065

REACTIONS (2)
  - Intensive care [Unknown]
  - Drug abuse [Unknown]
